FAERS Safety Report 23382252 (Version 2)
Quarter: 2024Q1

REPORT INFORMATION
  Report Type: Spontaneous
  Country: CN (occurrence: CN)
  Receive Date: 20240109
  Receipt Date: 20240124
  Transmission Date: 20240409
  Serious: Yes (Other)
  Sender: FDA-Public Use
  Company Number: CN-002147023-NVSC2024CN002871

PATIENT
  Age: 57 Year
  Sex: Male
  Weight: 53 kg

DRUGS (10)
  1. CYCLOSPORINE [Suspect]
     Active Substance: CYCLOSPORINE
     Indication: Liver transplant
     Dosage: 75 MG
     Route: 065
  2. CYCLOSPORINE [Suspect]
     Active Substance: CYCLOSPORINE
     Dosage: 50 MG
     Route: 065
  3. CYCLOSPORINE [Suspect]
     Active Substance: CYCLOSPORINE
     Dosage: 75 MG
     Route: 065
  4. CYCLOSPORINE [Suspect]
     Active Substance: CYCLOSPORINE
     Dosage: 125 MG, BID (125 MG IN THE MORNING  AND 125 MG IN THE EVENING)
     Route: 048
     Dates: start: 2021
  5. CYCLOSPORINE [Suspect]
     Active Substance: CYCLOSPORINE
     Dosage: 100 MG, BID (100 MG IN THE MORNING  AND 100 MG IN THE EVENING)
     Route: 048
  6. CYCLOSPORINE [Suspect]
     Active Substance: CYCLOSPORINE
     Dosage: 75 MG, BID (75MG IN THE  MORNING AND  75MG IN THE EVENING)
     Route: 048
  7. CYCLOSPORINE [Suspect]
     Active Substance: CYCLOSPORINE
     Dosage: 75 MG, BID (75 MG IN THE  MORNING AND 50 MG IN THE EVENING)
     Route: 048
     Dates: start: 202307, end: 202309
  8. CYCLOSPORINE [Suspect]
     Active Substance: CYCLOSPORINE
     Dosage: 50 MG, BID (50MG IN THE  MORNING AND 50MG IN THE EVENING)
     Route: 048
     Dates: start: 202309, end: 202312
  9. CYCLOSPORINE [Suspect]
     Active Substance: CYCLOSPORINE
     Dosage: 75 MG, BID (75MG IN THE  MORNING AND 75MG IN THE EVENING)
     Route: 048
     Dates: start: 202312
  10. MYFORTIC [Concomitant]
     Active Substance: MYCOPHENOLATE SODIUM
     Indication: Product used for unknown indication
     Dosage: 75 MG, BID
     Route: 065

REACTIONS (6)
  - Renal injury [Not Recovered/Not Resolved]
  - Drug level increased [Not Recovered/Not Resolved]
  - Drug level decreased [Recovering/Resolving]
  - Rebound effect [Recovering/Resolving]
  - Blood creatinine abnormal [Unknown]
  - Blood uric acid abnormal [Unknown]

NARRATIVE: CASE EVENT DATE: 20220601
